FAERS Safety Report 4435188-X (Version None)
Quarter: 2004Q3

REPORT INFORMATION
  Report Type: 
  Country: None (occurrence: None)
  Receive Date: 20040827
  Receipt Date: 20040813
  Transmission Date: 20050211
  Serious: Yes (Death, Hospitalization)
  Sender: FDA-Public Use
  Company Number: PL-ROCHE-377820

PATIENT
  Age: 72 Year
  Sex: Male
  Weight: 52 kg

DRUGS (4)
  1. XELODA [Suspect]
     Indication: COLORECTAL CANCER
     Dosage: DOSE REPORTED AS ^2000MG X 2^.
     Route: 048
     Dates: start: 20040722, end: 20040808
  2. MONONIT [Concomitant]
     Route: 048
  3. FLIXOTIDE [Concomitant]
     Dosage: DOSE REPORTED AS ^TWO INGHALATION^.
     Route: 055
  4. LANSOPRAZOLE [Concomitant]
     Indication: GASTRIC ULCER
     Dosage: DOSE REPORTED AS ^1X1^.

REACTIONS (13)
  - ABDOMINAL ADHESIONS [None]
  - ABDOMINAL PAIN [None]
  - DEHYDRATION [None]
  - DIARRHOEA [None]
  - FLATULENCE [None]
  - INTESTINAL OBSTRUCTION [None]
  - MULTI-ORGAN FAILURE [None]
  - POST PROCEDURAL COMPLICATION [None]
  - PYREXIA [None]
  - RENAL FAILURE [None]
  - RESPIRATORY FAILURE [None]
  - SHOCK [None]
  - VOMITING [None]
